FAERS Safety Report 5456039-0 (Version None)
Quarter: 2007Q3

REPORT INFORMATION
  Report Type: 
  Country: None (occurrence: None)
  Receive Date: 20070918
  Receipt Date: 20070330
  Transmission Date: 20080115
  Serious: Yes (Hospitalization)
  Sender: FDA-Public Use
  Company Number: US-ASTRAZENECA-2006UW23966

PATIENT
  Age: 16933 Day
  Sex: Male
  Weight: 92 kg

DRUGS (12)
  1. SEROQUEL [Suspect]
     Indication: SCHIZOPHRENIA
     Route: 048
  2. SEROQUEL [Suspect]
     Indication: DEPRESSION
     Route: 048
  3. SEROQUEL [Suspect]
     Indication: PANIC ATTACK
     Route: 048
  4. WEIGHT CONTROL MEDICATION [Concomitant]
  5. ABILIFY [Concomitant]
  6. GEODON [Concomitant]
  7. HALDOL [Concomitant]
  8. NAVANE [Concomitant]
  9. STELAZINE [Concomitant]
  10. THORAZINE [Concomitant]
  11. ZYPREXA [Concomitant]
  12. PRAVIL [Concomitant]

REACTIONS (2)
  - DIABETIC COMA [None]
  - TYPE 1 DIABETES MELLITUS [None]
